FAERS Safety Report 14529015 (Version 1)
Quarter: 2018Q1

REPORT INFORMATION
  Report Type: Spontaneous
  Country: US (occurrence: US)
  Receive Date: 20180213
  Receipt Date: 20180213
  Transmission Date: 20180509
  Serious: Yes (Hospitalization)
  Sender: FDA-Public Use
  Company Number: None

PATIENT
  Age: 54 Year
  Sex: Male

DRUGS (9)
  1. VIAGRA [Concomitant]
     Active Substance: SILDENAFIL CITRATE
  2. SUTENT [Suspect]
     Active Substance: SUNITINIB MALATE
     Indication: RENAL CANCER
     Dosage: DOSE/FREQUENCY - 37.5MG 28D ON 14DS OFF - QD
     Route: 048
     Dates: start: 20141216
  3. XANAX [Concomitant]
     Active Substance: ALPRAZOLAM
  4. ONDANSETRON [Concomitant]
     Active Substance: ONDANSETRON
  5. GAMASTAN [Concomitant]
     Active Substance: HUMAN IMMUNOGLOBULIN G
  6. DIPHENHYDRAM [Concomitant]
  7. MELATONIN [Concomitant]
     Active Substance: MELATONIN
  8. IBUPROFEN. [Concomitant]
     Active Substance: IBUPROFEN
  9. ANDROGEL [Concomitant]
     Active Substance: TESTOSTERONE

REACTIONS (2)
  - Abscess [None]
  - Skin disorder [None]

NARRATIVE: CASE EVENT DATE: 20180202
